FAERS Safety Report 10003595 (Version 1)
Quarter: 2014Q1

REPORT INFORMATION
  Report Type: Spontaneous
  Country: US (occurrence: US)
  Receive Date: 20140312
  Receipt Date: 20140312
  Transmission Date: 20141002
  Serious: Yes (Hospitalization)
  Sender: FDA-Public Use
  Company Number: US-INCYTE CORPORATION-2014IN000070

PATIENT
  Sex: Male

DRUGS (7)
  1. JAKAFI [Suspect]
     Indication: ESSENTIAL THROMBOCYTHAEMIA
     Dosage: 15 MG, BID
     Route: 048
  2. SIMVASTATIN-1A PHARMA [Concomitant]
  3. DOXAZOSIN [Concomitant]
  4. HYDROCHLOROTHIAZIDE [Concomitant]
  5. ENALAPRIL [Concomitant]
  6. CARVEDILOL [Concomitant]
  7. ASPIRIN [Concomitant]
     Dosage: 81 MG, UNK

REACTIONS (1)
  - Transfusion [Unknown]
